FAERS Safety Report 13900530 (Version 1)
Quarter: 2017Q3

REPORT INFORMATION
  Report Type: Spontaneous
  Country: US (occurrence: None)
  Receive Date: 20170818
  Receipt Date: 20170818
  Transmission Date: 20171127
  Serious: Yes (Hospitalization)
  Sender: FDA-Public Use
  Company Number: None

PATIENT
  Age: 65 Year
  Sex: Female
  Weight: 56.7 kg

DRUGS (1)
  1. GADOBUTROL 10 ML VIAL 10 MMOL/10 ML BAYER HEALTHCARE PHARMACEUTICALS INC . [Suspect]
     Active Substance: GADOBUTROL
     Indication: BREAST CANCER
     Route: 042
     Dates: start: 20170803

REACTIONS (3)
  - Urticaria [None]
  - Contrast media reaction [None]
  - Pruritus [None]

NARRATIVE: CASE EVENT DATE: 20170803
